FAERS Safety Report 5217861-9 (Version None)
Quarter: 2007Q1

REPORT INFORMATION
  Report Type: 
  Country: None (occurrence: None)
  Receive Date: 20070124
  Receipt Date: 20070109
  Transmission Date: 20070707
  Serious: Yes (Other)
  Sender: FDA-Public Use
  Company Number: US-SHR-US-2006-029175

PATIENT
  Age: 62 Year
  Sex: Female
  Weight: 73.923 kg

DRUGS (6)
  1. BETASERON [Suspect]
     Dosage: 8 MIU, EVERY 2D
     Route: 058
     Dates: start: 20060630
  2. MAVIK [Concomitant]
     Indication: HYPERTENSION
     Dosage: 4 MG, UNK
  3. METOPROLOL SUCCINATE [Concomitant]
     Indication: HYPERTENSION
     Dosage: 50 MG, 2X/DAY
  4. AVANDIA [Concomitant]
     Dosage: 2 MG, UNK
  5. ZOCOR [Concomitant]
     Dosage: 80 MG, UNK
  6. HYDROCODONE BITARTRATE [Concomitant]
     Indication: PAIN

REACTIONS (1)
  - ALBUMIN URINE PRESENT [None]
